FAERS Safety Report 25387028 (Version 2)
Quarter: 2025Q3

REPORT INFORMATION
  Report Type: Report from Study
  Country: CL (occurrence: CL)
  Receive Date: 20250602
  Receipt Date: 20250702
  Transmission Date: 20251021
  Serious: Yes (Hospitalization, Other)
  Sender: SANDOZ
  Company Number: CL-SANDOZ-SDZ2025CL037849

PATIENT
  Age: 7 Year
  Sex: Male
  Weight: 23 kg

DRUGS (1)
  1. OMNITROPE [Suspect]
     Active Substance: SOMATROPIN
     Indication: Product used for unknown indication
     Dosage: 1 MG, QD( STRENGTH: 10 MG / 1.5 ML)
     Route: 058
     Dates: start: 202405

REACTIONS (3)
  - Renal transplant [Unknown]
  - Renal failure [Unknown]
  - Growth retardation [Unknown]

NARRATIVE: CASE EVENT DATE: 20250411
